FAERS Safety Report 9025375 (Version 1)
Quarter: 2013Q1

REPORT INFORMATION
  Report Type: Spontaneous
  Country: JP (occurrence: JP)
  Receive Date: 20130122
  Receipt Date: 20130122
  Transmission Date: 20140127
  Serious: Yes (Hospitalization)
  Sender: FDA-Public Use
  Company Number: JP-PFIZER INC-2013020535

PATIENT
  Age: 17 Month
  Sex: Male

DRUGS (4)
  1. HYDROCORTISONE SODIUM SUCCINATE [Suspect]
     Indication: ADRENOGENITAL SYNDROME
     Dosage: 100 MG/DAY
     Route: 042
  2. HYDROCORTISONE SODIUM SUCCINATE [Suspect]
     Dosage: 200 MG/DAY
     Route: 042
  3. AMPICILLIN SODIUM W/SULBACTAM SODIUM [Concomitant]
     Dosage: 100 MG/KG/DAY
  4. GLUCOSE [Concomitant]
     Dosage: 1 ML/KG
     Route: 042

REACTIONS (2)
  - Encephalopathy [Recovered/Resolved]
  - Blood glucose increased [Recovered/Resolved]
